FAERS Safety Report 18348309 (Version 1)
Quarter: 2020Q4

REPORT INFORMATION
  Report Type: Spontaneous
  Country: US (occurrence: US)
  Receive Date: 20201005
  Receipt Date: 20201005
  Transmission Date: 20210114
  Serious: Yes (Hospitalization)
  Sender: FDA-Public Use
  Company Number: None

PATIENT
  Age: 65 Year
  Sex: Female

DRUGS (15)
  1. TOLTERODINE [Concomitant]
     Active Substance: TOLTERODINE
  2. VITA-PLUS E [Concomitant]
  3. OMEPRAZOLE. [Concomitant]
     Active Substance: OMEPRAZOLE
  4. VITAMIN B12 [Concomitant]
     Active Substance: CYANOCOBALAMIN
  5. ZOLPIDEM [Concomitant]
     Active Substance: ZOLPIDEM TARTRATE
  6. A-HYDROCORT [Concomitant]
     Active Substance: HYDROCORTISONE SODIUM SUCCINATE
  7. CRUSH VIT C [Concomitant]
  8. DETROL [Concomitant]
     Active Substance: TOLTERODINE TARTRATE
  9. ASPIRIN. [Concomitant]
     Active Substance: ASPIRIN
  10. TRIAM/HCTZ [Concomitant]
     Active Substance: HYDROCHLOROTHIAZIDE\TRIAMTERENE
  11. XELJANZ XR [Suspect]
     Active Substance: TOFACITINIB CITRATE
     Indication: COLITIS ULCERATIVE
     Dosage: ?          OTHER DOSE:1 TAB;?
     Route: 048
     Dates: start: 20190505
  12. CEFUROXIME. [Concomitant]
     Active Substance: CEFUROXIME
  13. MESALAMINE. [Concomitant]
     Active Substance: MESALAMINE
  14. CALCIFEROL [Concomitant]
  15. SIMVASTATIN. [Concomitant]
     Active Substance: SIMVASTATIN

REACTIONS (1)
  - COVID-19 [None]

NARRATIVE: CASE EVENT DATE: 20200901
